FAERS Safety Report 5621149-1 (Version None)
Quarter: 2008Q1

REPORT INFORMATION
  Report Type: 
  Country: None (occurrence: None)
  Receive Date: 20080114
  Receipt Date: 20061128
  Transmission Date: 20080703
  Serious: Yes (Hospitalization)
  Sender: FDA-Public Use
  Company Number: A03200607159

PATIENT
  Age: 80 Year
  Sex: Female

DRUGS (7)
  1. PLAVIX [Suspect]
     Indication: CARDIAC PACEMAKER INSERTION
     Dosage: ORAL
     Route: 048
     Dates: start: 20040101, end: 20060401
  2. ACETYLSALICYLIC ACID SRT [Concomitant]
  3. BECLOMETHASONE DIPROPIONATE [Concomitant]
  4. MONTELUKAST SODIUM [Concomitant]
  5. LEVOTHYROXINE SODIUM [Concomitant]
  6. MORPHINE [Concomitant]
  7. OXYCODONE HYDROCHLORIDE [Concomitant]

REACTIONS (1)
  - GASTROINTESTINAL HAEMORRHAGE [None]
